FAERS Safety Report 23162091 (Version 1)
Quarter: 2023Q4

REPORT INFORMATION
  Report Type: Spontaneous
  Country: SG (occurrence: SG)
  Receive Date: 20231109
  Receipt Date: 20231109
  Transmission Date: 20240109
  Serious: Yes (Death, Hospitalization, Other)
  Sender: FDA-Public Use
  Company Number: SG-CELLTRION INC.-2023SG021269

PATIENT

DRUGS (3)
  1. TRASTUZUMAB [Suspect]
     Active Substance: TRASTUZUMAB
     Indication: Human epidermal growth factor receptor increased
     Dosage: DAY 15 OF THE FIRST CYCLE, THREE WEEKLY
     Dates: start: 20200415
  2. CAPECITABINE [Suspect]
     Active Substance: CAPECITABINE
     Indication: Human epidermal growth factor receptor increased
     Dosage: ON DAY 15 OF THE FIRST CYCLE, THREE WEEKLY
     Dates: start: 202004
  3. CISPLATIN [Suspect]
     Active Substance: CISPLATIN
     Indication: Human epidermal growth factor receptor increased
     Dosage: DAY 15 OF THE FIRST CYCLE, THREE WEEKLY
     Dates: start: 202004

REACTIONS (2)
  - COVID-19 [Fatal]
  - Bicytopenia [Unknown]
